FAERS Safety Report 9013372 (Version 1)
Quarter: 2013Q1

REPORT INFORMATION
  Report Type: Spontaneous
  Country: US (occurrence: None)
  Receive Date: 20130107
  Receipt Date: 20130107
  Transmission Date: 20140127
  Serious: No
  Sender: FDA-Public Use
  Company Number: None

PATIENT
  Age: 19 Year
  Sex: Female
  Weight: 77.11 kg

DRUGS (3)
  1. MONTELUKAST [Suspect]
     Dosage: 1 PO Q DAY
     Route: 048
     Dates: start: 20121129, end: 20121231
  2. MONTELUKAST [Suspect]
     Dosage: 1 PO Q DAY
     Route: 048
     Dates: start: 20121129, end: 20121231
  3. SINGULAIR [Concomitant]

REACTIONS (1)
  - Therapeutic response unexpected with drug substitution [None]
